FAERS Safety Report 21651092 (Version 1)
Quarter: 2022Q4

REPORT INFORMATION
  Report Type: Spontaneous
  Country: US (occurrence: US)
  Receive Date: 20221128
  Receipt Date: 20221128
  Transmission Date: 20230113
  Serious: No
  Sender: FDA-Public Use
  Company Number: US-PFIZER INC-202201325194

PATIENT
  Age: 81 Year
  Sex: Female
  Weight: 68.04 kg

DRUGS (9)
  1. DEPO-ESTRADIOL [Suspect]
     Active Substance: ESTRADIOL CYPIONATE
     Indication: Hormone replacement therapy
     Dosage: 1ML PER DOSE INJECTION INTO THE MUSCLE EVERY 30 DAYS ON 10TH DAY OF THE MONTH
     Route: 030
     Dates: start: 1985
  2. XARELTO [Concomitant]
     Active Substance: RIVAROXABAN
     Indication: Anticoagulant therapy
     Dosage: 15 MG, 1X/DAY
     Dates: start: 20200421
  3. TOPROL XL [Concomitant]
     Active Substance: METOPROLOL SUCCINATE
     Indication: Blood pressure abnormal
     Dosage: 50 MG, 1X/DAY
  4. SPIRONOLACTONE [Concomitant]
     Active Substance: SPIRONOLACTONE
     Indication: Hypervolaemia
     Dosage: 25 MG, 1X/DAY
     Dates: start: 20200421
  5. HYDRALAZINE [Concomitant]
     Active Substance: HYDRALAZINE HYDROCHLORIDE
     Indication: Hypervolaemia
     Dosage: 25 MG, 3X/DAY
     Dates: start: 20200421
  6. EXCEDRIN MIGRAINE [Concomitant]
     Active Substance: ACETAMINOPHEN\ASPIRIN\CAFFEINE
     Dosage: UNK
  7. FLONASE [Concomitant]
     Active Substance: FLUTICASONE PROPIONATE
     Dosage: UNK
  8. HYDROCHLOROTHIAZIDE\TRIAMTERENE [Concomitant]
     Active Substance: HYDROCHLOROTHIAZIDE\TRIAMTERENE
     Indication: Blood pressure abnormal
     Dosage: 1 DF, 1X/DAY (ONCE A DAY)
  9. CALCIUM [Concomitant]
     Active Substance: CALCIUM

REACTIONS (7)
  - Malaise [Not Recovered/Not Resolved]
  - Impatience [Unknown]
  - Irritability [Unknown]
  - Hostility [Unknown]
  - Feeling abnormal [Unknown]
  - Product dose omission issue [Unknown]
  - Product supply issue [Unknown]

NARRATIVE: CASE EVENT DATE: 20221101
